FAERS Safety Report 8698755 (Version 2)
Quarter: 2012Q4

REPORT INFORMATION
  Report Type: 
  Country: US (occurrence: US)
  Receive Date: 20120802
  Receipt Date: 20121010
  Transmission Date: 20130627
  Serious: Yes (Hospitalization, Other)
  Sender: FDA-Public Use
  Company Number: US-INCYTE CORPORATION-2012IN001369

PATIENT
  Age: 59 Year
  Sex: Male
  Weight: 80 kg

DRUGS (12)
  1. JAKAFI [Suspect]
     Indication: MYELOFIBROSIS
     Dosage: 15 mg, bid
     Route: 048
     Dates: start: 20120227, end: 20120318
  2. JAKAFI [Suspect]
     Dosage: 10 mg, bid
     Route: 048
     Dates: start: 20120319, end: 20120716
  3. JAKAFI [Suspect]
     Dosage: 5 mg, bid
     Route: 048
     Dates: start: 20120718, end: 20120726
  4. JAKAFI [Suspect]
     Dosage: 10 mg, bid
     Route: 048
     Dates: start: 20120727
  5. GLIPIZIDE [Concomitant]
  6. METFORMIN [Concomitant]
  7. ASPIRIN [Concomitant]
  8. METOPROLOL [Concomitant]
  9. LIPITOR [Concomitant]
  10. OLMESARTAN [Concomitant]
  11. PANTOPRAZOLE [Concomitant]
  12. ALLOPURINOL [Concomitant]

REACTIONS (6)
  - Sepsis [Not Recovered/Not Resolved]
  - Diarrhoea [Not Recovered/Not Resolved]
  - Vomiting [Not Recovered/Not Resolved]
  - Nausea [Not Recovered/Not Resolved]
  - Thrombocytopenia [Unknown]
  - Anaemia [Unknown]
